FAERS Safety Report 8205702-7 (Version None)
Quarter: 2012Q1

REPORT INFORMATION
  Report Type: 
  Country: None (occurrence: None)
  Receive Date: 20120313
  Receipt Date: 20120306
  Transmission Date: 20120608
  Serious: Yes (Other)
  Sender: FDA-Public Use
  Company Number: CA-UCBSA-051381

PATIENT
  Age: 49 Year
  Sex: Female
  Weight: 107 kg

DRUGS (13)
  1. PLAQUENIL [Concomitant]
     Indication: RHEUMATOID ARTHRITIS
     Route: 048
     Dates: start: 20051001
  2. NEXIUM [Concomitant]
     Route: 048
     Dates: start: 20040101
  3. LAXIX [Concomitant]
     Indication: SWELLING
     Route: 048
  4. CITALOPRAM HYDROBROMIDE [Concomitant]
     Indication: ANALGESIC DRUG LEVEL ABOVE THERAPEUTIC
     Dosage: DOSE PER INTAKE: 2 TABS
     Route: 048
     Dates: start: 20110101
  5. AMOXICILLIN [Concomitant]
     Indication: PAIN
     Route: 048
     Dates: start: 20120207
  6. PREDNISONE [Concomitant]
     Indication: RHEUMATOID ARTHRITIS
     Route: 048
     Dates: start: 20051001
  7. NEXIUM [Concomitant]
     Indication: ABDOMINAL PAIN UPPER
     Route: 048
     Dates: start: 20040101
  8. OXYCONTIN [Concomitant]
     Dosage: 20 MG: WHEN REQUIRED
     Route: 048
     Dates: start: 20040101
  9. CIMZIA [Suspect]
     Indication: RHEUMATOID ARTHRITIS
     Dosage: NUMBER OF DOSES: 3
     Route: 058
     Dates: start: 20111220
  10. FOLIC ACID [Concomitant]
     Indication: RHEUMATOID ARTHRITIS
     Route: 048
     Dates: start: 20040101
  11. OXYCONTIN [Concomitant]
     Indication: PAIN
     Route: 048
     Dates: start: 20040101
  12. HYDROXYCHLOROQUINE SULFATE [Concomitant]
     Indication: RHEUMATOID ARTHRITIS
     Dosage: 400 MG
     Route: 048
     Dates: start: 20051001
  13. OXYCONTIN [Concomitant]
     Route: 048
     Dates: start: 20040101

REACTIONS (5)
  - OEDEMA PERIPHERAL [None]
  - URTICARIA [None]
  - HERPES SIMPLEX [None]
  - PAIN [None]
  - PAIN IN JAW [None]
